FAERS Safety Report 6256341-9 (Version None)
Quarter: 2009Q3

REPORT INFORMATION
  Report Type: 
  Country: None (occurrence: None)
  Receive Date: 20090706
  Receipt Date: 20090626
  Transmission Date: 20100115
  Serious: Yes (Other)
  Sender: FDA-Public Use
  Company Number: FR-ROCHE-624396

PATIENT
  Sex: Female
  Weight: 62 kg

DRUGS (1)
  1. BONIVA [Suspect]
     Indication: OSTEOPOROSIS
     Route: 048
     Dates: start: 20080901, end: 20090401

REACTIONS (4)
  - CREATININE URINE DECREASED [None]
  - HYPOCALCIURIA [None]
  - OSTEONECROSIS [None]
  - TOOTHACHE [None]
